FAERS Safety Report 5316054-4 (Version None)
Quarter: 2007Q2

REPORT INFORMATION
  Report Type: 
  Country: None (occurrence: None)
  Receive Date: 20070503
  Receipt Date: 20070424
  Transmission Date: 20071010
  Serious: Yes (Hospitalization)
  Sender: FDA-Public Use
  Company Number: US-ELI_LILLY_AND_COMPANY-US200704001264

PATIENT
  Age: 81 Year
  Sex: Male
  Weight: 68.934 kg

DRUGS (4)
  1. BYETTA [Suspect]
     Indication: DIABETES MELLITUS NON-INSULIN-DEPENDENT
     Dosage: 5 UG, 2/D
     Route: 058
     Dates: start: 20060701, end: 20070301
  2. BYETTA [Suspect]
     Dosage: 5 UG, 2/D
     Route: 058
     Dates: start: 20070301
  3. AVANDIA [Concomitant]
     Indication: DIABETES MELLITUS
     Dosage: UNK, 2/D
     Route: 048
  4. INSULIN [Concomitant]
     Dosage: UNK, DAILY (1/D)
     Dates: start: 20070301, end: 20070301

REACTIONS (3)
  - DECREASED APPETITE [None]
  - PNEUMONIA [None]
  - WEIGHT DECREASED [None]
